FAERS Safety Report 5465648-4 (Version None)
Quarter: 2007Q3

REPORT INFORMATION
  Report Type: 
  Country: None (occurrence: None)
  Receive Date: 20070919
  Receipt Date: 20070919
  Transmission Date: 20080115
  Serious: Yes (Death, Hospitalization)
  Sender: FDA-Public Use
  Company Number: None

PATIENT
  Age: 36 Year
  Sex: Female
  Weight: 61.2356 kg

DRUGS (9)
  1. DEPAKOTE [Suspect]
     Indication: CONVULSION
  2. NEURONTIN [Suspect]
  3. GABAPENTIN [Concomitant]
  4. CLONAZEPAM [Concomitant]
  5. PHENYTOIN [Concomitant]
  6. CARBAMAZEPINE [Concomitant]
  7. LEVETIRACETAM [Concomitant]
  8. METRANIDAZOLE [Concomitant]
  9. VALPROIC ACID [Concomitant]

REACTIONS (9)
  - CARDIOPULMONARY FAILURE [None]
  - CATATONIA [None]
  - CLOSTRIDIUM DIFFICILE COLITIS [None]
  - CONVERSION DISORDER [None]
  - INJURY [None]
  - NEUROLEPTIC MALIGNANT SYNDROME [None]
  - RENAL FAILURE ACUTE [None]
  - RHABDOMYOLYSIS [None]
  - UNRESPONSIVE TO STIMULI [None]
